FAERS Safety Report 15116608 (Version 1)
Quarter: 2018Q3

REPORT INFORMATION
  Report Type: Report from Study
  Country: BR (occurrence: BR)
  Receive Date: 20180706
  Receipt Date: 20180706
  Transmission Date: 20181010
  Serious: Yes (Other)
  Sender: FDA-Public Use
  Company Number: PHHY2018BR036754

PATIENT
  Sex: Female
  Weight: 70 kg

DRUGS (1)
  1. ACLASTA [Suspect]
     Active Substance: ZOLEDRONIC ACID
     Indication: OSTEOPOROSIS
     Dosage: A SINGLE DOSE
     Route: 065
     Dates: start: 2014, end: 2014

REACTIONS (2)
  - Vascular calcification [Recovered/Resolved with Sequelae]
  - Drug effect incomplete [Recovered/Resolved with Sequelae]

NARRATIVE: CASE EVENT DATE: 2015
